FAERS Safety Report 12069035 (Version 1)
Quarter: 2016Q1

REPORT INFORMATION
  Report Type: Spontaneous
  Country: DE (occurrence: DE)
  Receive Date: 20160211
  Receipt Date: 20160211
  Transmission Date: 20160526
  Serious: Yes (Hospitalization, Other)
  Sender: FDA-Public Use
  Company Number: DE-PFIZER INC-2016071172

PATIENT
  Sex: Female

DRUGS (16)
  1. DEKRISTOL [Concomitant]
     Active Substance: CHOLECALCIFEROL
     Dosage: UNK
  2. ALLOPURINOL. [Concomitant]
     Active Substance: ALLOPURINOL
     Dosage: UNK
  3. SINUPRET /00578801/ [Suspect]
     Active Substance: ASCORBIC ACID\HERBALS
     Indication: SINUSITIS
     Dosage: UNK, 3X/DAY
     Route: 048
     Dates: start: 20160109, end: 20160110
  4. ASPIRIN. [Concomitant]
     Active Substance: ASPIRIN
     Dosage: UNK
  5. METOHEXAL [Concomitant]
     Active Substance: METOPROLOL SUCCINATE
     Dosage: UNK
  6. RAMILICH [Suspect]
     Active Substance: RAMIPRIL
     Dosage: 5 MG, 2X/DAY
     Route: 048
  7. RANEXA [Concomitant]
     Active Substance: RANOLAZINE
     Dosage: UNK
  8. ARAVA [Concomitant]
     Active Substance: LEFLUNOMIDE
     Dosage: UNK
  9. PANTOPRAZOLE [Concomitant]
     Active Substance: PANTOPRAZOLE SODIUM
     Dosage: UNK
  10. EISENTABLETTEN [Concomitant]
     Dosage: UNK
  11. EUTHYROX [Concomitant]
     Active Substance: LEVOTHYROXINE SODIUM
     Dosage: UNK
  12. FUROSEMID [Concomitant]
     Active Substance: FUROSEMIDE
     Dosage: UNK
  13. LERCANIDIPINE [Concomitant]
     Active Substance: LERCANIDIPINE
     Dosage: UNK
  14. CLOPIDOGREL ZENTIVA [Concomitant]
     Active Substance: CLOPIDOGREL BISULFATE
     Dosage: UNK
  15. JANUMET [Concomitant]
     Active Substance: METFORMIN HYDROCHLORIDE\SITAGLIPTIN PHOSPHATE
     Dosage: UNK
  16. ATORVASTATIN [Concomitant]
     Active Substance: ATORVASTATIN
     Dosage: UNK

REACTIONS (4)
  - Swollen tongue [Unknown]
  - Angioedema [Unknown]
  - Respiratory tract infection [Unknown]
  - Asthma-chronic obstructive pulmonary disease overlap syndrome [Unknown]

NARRATIVE: CASE EVENT DATE: 20160110
